FAERS Safety Report 17011276 (Version 2)
Quarter: 2019Q4

REPORT INFORMATION
  Report Type: Spontaneous
  Country: US (occurrence: US)
  Receive Date: 20191108
  Receipt Date: 20191213
  Transmission Date: 20200122
  Serious: No
  Sender: FDA-Public Use
  Company Number: US-NOVOPROD-638751

PATIENT
  Age: 63 Year
  Sex: Female

DRUGS (2)
  1. LEVEMIR [Suspect]
     Active Substance: INSULIN DETEMIR
     Indication: DIABETES MELLITUS
     Dosage: 26 IU, QD
     Route: 058
     Dates: start: 201812
  2. TRESIBA [Suspect]
     Active Substance: INSULIN DEGLUDEC
     Indication: DIABETES MELLITUS
     Dosage: 26 IU, QD
     Route: 058

REACTIONS (7)
  - Fatigue [Not Recovered/Not Resolved]
  - Somnolence [Not Recovered/Not Resolved]
  - Product appearance confusion [Unknown]
  - Chest pain [Not Recovered/Not Resolved]
  - Blood glucose increased [Not Recovered/Not Resolved]
  - Blood glucose decreased [Recovered/Resolved]
  - Wrong product administered [Unknown]

NARRATIVE: CASE EVENT DATE: 20181212
